FAERS Safety Report 14714856 (Version 3)
Quarter: 2018Q3

REPORT INFORMATION
  Report Type: Spontaneous
  Country: IT (occurrence: IT)
  Receive Date: 20180404
  Receipt Date: 20180802
  Transmission Date: 20181010
  Serious: Yes (Hospitalization, Other)
  Sender: FDA-Public Use
  Company Number: IT-TEVA-2018-IT-875166

PATIENT
  Age: 73 Year
  Sex: Female
  Weight: 60 kg

DRUGS (3)
  1. ELIQUIS [Suspect]
     Active Substance: APIXABAN
     Indication: CEREBROVASCULAR ACCIDENT PROPHYLAXIS
  2. ELIQUIS [Suspect]
     Active Substance: APIXABAN
     Indication: CARDIAC FIBRILLATION
     Route: 048
     Dates: start: 20170731
  3. AMIODARONE [Suspect]
     Active Substance: AMIODARONE
     Indication: CARDIAC FIBRILLATION
     Dosage: 400 MILLIGRAM DAILY;
     Route: 065
     Dates: start: 20161230

REACTIONS (2)
  - Off label use [Unknown]
  - Hepatitis acute [Not Recovered/Not Resolved]

NARRATIVE: CASE EVENT DATE: 20171129
